FAERS Safety Report 25202723 (Version 4)
Quarter: 2025Q4

REPORT INFORMATION
  Report Type: Spontaneous
  Country: JP (occurrence: JP)
  Receive Date: 20250416
  Receipt Date: 20251217
  Transmission Date: 20260117
  Serious: Yes (Death, Hospitalization, Other)
  Sender: MERCK SHARP & DOHME LLC
  Company Number: JP-009507513-2274757

PATIENT
  Age: 78 Year
  Sex: Male

DRUGS (3)
  1. KEYTRUDA [Suspect]
     Active Substance: PEMBROLIZUMAB
     Indication: Gastric cancer stage IV
     Route: 041
     Dates: start: 202502, end: 202506
  2. CAPECITABINE [Suspect]
     Active Substance: CAPECITABINE
     Indication: Gastric cancer stage IV
     Dosage: LAST ADMIN DATE: IN 2025
     Route: 065
     Dates: start: 202502
  3. OXALIPLATIN [Suspect]
     Active Substance: OXALIPLATIN
     Indication: Gastric cancer stage IV
     Dosage: LAST ADMIN DATE: IN 2025
     Route: 065
     Dates: start: 202502

REACTIONS (2)
  - Malignant neoplasm progression [Fatal]
  - Malignant ascites [Recovering/Resolving]

NARRATIVE: CASE EVENT DATE: 20250301
